FAERS Safety Report 17410966 (Version 1)
Quarter: 2020Q1

REPORT INFORMATION
  Report Type: Spontaneous
  Country: US (occurrence: US)
  Receive Date: 20200212
  Receipt Date: 20200212
  Transmission Date: 20200409
  Serious: No
  Sender: FDA-Public Use
  Company Number: US-RIGEL PHARMACEUTICALS, INC.-2019FOS000652

PATIENT
  Sex: Female

DRUGS (1)
  1. TAVALISSE [Suspect]
     Active Substance: FOSTAMATINIB
     Indication: SYSTEMIC LUPUS ERYTHEMATOSUS
     Dosage: 100 MG, BID
     Dates: start: 20191129

REACTIONS (3)
  - Product dose omission [Unknown]
  - Migraine [Unknown]
  - Dyspnoea [Unknown]

NARRATIVE: CASE EVENT DATE: 2019
